FAERS Safety Report 15970605 (Version 9)
Quarter: 2025Q4

REPORT INFORMATION
  Report Type: Report from Study
  Country: US (occurrence: US)
  Receive Date: 20190215
  Receipt Date: 20251127
  Transmission Date: 20260118
  Serious: Yes (Hospitalization, Other)
  Sender: TAKEDA
  Company Number: US-SHIRE-US201905184

PATIENT
  Age: 57 Year
  Sex: Female
  Weight: 252 kg

DRUGS (4)
  1. TEDUGLUTIDE [Suspect]
     Active Substance: TEDUGLUTIDE
     Indication: Short-bowel syndrome
     Dosage: 0.57 MILLILITER, QD
     Dates: start: 20181228
  2. TEDUGLUTIDE [Suspect]
     Active Substance: TEDUGLUTIDE
     Dosage: UNK
  3. TEDUGLUTIDE [Suspect]
     Active Substance: TEDUGLUTIDE
     Dosage: UNK UNK, QD
  4. TEDUGLUTIDE [Suspect]
     Active Substance: TEDUGLUTIDE

REACTIONS (10)
  - Brain oedema [Recovering/Resolving]
  - Post-traumatic stress disorder [Recovering/Resolving]
  - Blood glucose decreased [Recovering/Resolving]
  - Dehydration [Recovering/Resolving]
  - Fall [Not Recovered/Not Resolved]
  - Brain injury [Not Recovered/Not Resolved]
  - Hernia [Unknown]
  - Migraine [Unknown]
  - Hyperkeratosis [Unknown]
  - Device issue [Unknown]
